FAERS Safety Report 21049074 (Version 2)
Quarter: 2022Q4

REPORT INFORMATION
  Report Type: Spontaneous
  Country: US (occurrence: US)
  Receive Date: 20220706
  Receipt Date: 20221011
  Transmission Date: 20230113
  Serious: No
  Sender: FDA-Public Use
  Company Number: US-INCYTE CORPORATION-2022IN006414

PATIENT

DRUGS (1)
  1. JAKAFI [Suspect]
     Active Substance: RUXOLITINIB
     Indication: Polycythaemia vera
     Dosage: 10 MILLIGRAM, BID
     Route: 048
     Dates: start: 20211130

REACTIONS (6)
  - Fatigue [Unknown]
  - Skin irritation [Unknown]
  - Weight increased [Unknown]
  - Skin burning sensation [Unknown]
  - Dizziness [Unknown]
  - Headache [Unknown]
